FAERS Safety Report 8051921-2 (Version None)
Quarter: 2012Q1

REPORT INFORMATION
  Report Type: 
  Country: None (occurrence: None)
  Receive Date: 20120111
  Receipt Date: 20120104
  Transmission Date: 20120608
  Serious: Yes (Hospitalization, Disabling, Other)
  Sender: FDA-Public Use
  Company Number: 2012MA000217

PATIENT
  Age: 50 Year
  Sex: Male

DRUGS (3)
  1. TAMSULOSIN HCL [Concomitant]
  2. ALBUTEROL SULFATE AUTOHALER [Concomitant]
  3. BICALUTAMIDE [Suspect]
     Indication: PROSTATE CANCER
     Dosage: PO
     Route: 048

REACTIONS (3)
  - CARDIAC FAILURE CONGESTIVE [None]
  - VENTRICULAR DYSFUNCTION [None]
  - CARDIOMEGALY [None]
